FAERS Safety Report 22017091 (Version 1)
Quarter: 2023Q1

REPORT INFORMATION
  Report Type: Spontaneous
  Country: US (occurrence: None)
  Receive Date: 20230217
  Receipt Date: 20230217
  Transmission Date: 20230417
  Serious: No
  Sender: FDA-Public Use
  Company Number: None

PATIENT
  Age: 73 Year
  Sex: Male

DRUGS (2)
  1. HUMIRA [Suspect]
     Active Substance: ADALIMUMAB
     Indication: Rheumatoid arthritis
     Dosage: OTHER FREQUENCY : EVERY 2 WEEKS AS D;?
     Route: 058
     Dates: start: 201604
  2. METHOTREXATE [Suspect]
     Active Substance: METHOTREXATE
     Indication: Rheumatoid arthritis
     Dosage: OTHER QUANTITY : TAKE 4 TABLETS;?FREQUENCY : WEEKLY;?
     Route: 048
     Dates: start: 202208

REACTIONS (2)
  - Upper respiratory tract infection [None]
  - Bronchitis [None]
